FAERS Safety Report 22073152 (Version 2)
Quarter: 2023Q1

REPORT INFORMATION
  Report Type: Report from Study
  Country: JP (occurrence: JP)
  Receive Date: 20230308
  Receipt Date: 20230330
  Transmission Date: 20230417
  Serious: Yes (Death, Other)
  Sender: FDA-Public Use
  Company Number: JP-TAKEDA-2023TJP000099

PATIENT
  Age: 76 Year
  Sex: Male

DRUGS (1)
  1. CABOMETYX [Suspect]
     Active Substance: CABOZANTINIB S-MALATE
     Indication: Renal cell carcinoma stage IV
     Dosage: 20 MG, QD
     Route: 048
     Dates: start: 20220105, end: 20220121

REACTIONS (2)
  - Duodenal perforation [Fatal]
  - Retroperitoneal abscess [Fatal]

NARRATIVE: CASE EVENT DATE: 20220121
